FAERS Safety Report 22848714 (Version 3)
Quarter: 2023Q4

REPORT INFORMATION
  Report Type: Spontaneous
  Country: US (occurrence: US)
  Receive Date: 20230822
  Receipt Date: 20231108
  Transmission Date: 20240109
  Serious: No
  Sender: FDA-Public Use
  Company Number: US-SA-SAC20230817001571

PATIENT
  Age: 53 Year
  Sex: Female

DRUGS (5)
  1. DUPIXENT [Suspect]
     Active Substance: DUPILUMAB
     Indication: Nasal polyps
     Dosage: 300 MG, QOW
     Route: 058
     Dates: start: 20230729
  2. FLUTICASONE [Concomitant]
     Active Substance: FLUTICASONE
     Indication: Rhinitis
     Dosage: 2 DF
  3. VITAMIN D3 [Concomitant]
     Active Substance: CHOLECALCIFEROL
     Dosage: I7300DOSE
     Route: 048
  4. LORATADINE [Concomitant]
     Active Substance: LORATADINE
     Indication: Rhinitis
     Dosage: 10 MG
     Route: 048
  5. MONTELUKAST [Concomitant]
     Active Substance: MONTELUKAST SODIUM
     Indication: Rhinitis
     Dosage: 10 MG
     Route: 048

REACTIONS (3)
  - Injection site urticaria [Recovered/Resolved]
  - Injection site pruritus [Recovered/Resolved]
  - Injection site swelling [Recovered/Resolved]

NARRATIVE: CASE EVENT DATE: 20230729
